FAERS Safety Report 7797570-2 (Version None)
Quarter: 2011Q4

REPORT INFORMATION
  Report Type: 
  Country: None (occurrence: None)
  Receive Date: 20111005
  Receipt Date: 20110922
  Transmission Date: 20120403
  Serious: Yes (Hospitalization)
  Sender: FDA-Public Use
  Company Number: DE-B.I. PHARMACEUTICALS,INC./RIDGEFIELD-2011-DE-05349DE

PATIENT
  Sex: Female
  Weight: 64 kg

DRUGS (16)
  1. TORASEMID10 [Concomitant]
     Dosage: 1 ANZ
  2. ACTONELLE PLUS [Concomitant]
     Dosage: 1 ANZ
  3. PREDNI 5 [Concomitant]
     Dosage: 0.5 ANZ
  4. SIMVADURA 290 [Concomitant]
     Dosage: 1 ANZ
  5. BISOPROLOL 2,5 [Concomitant]
     Dosage: 1 ANZ
  6. PRADAXA [Suspect]
     Indication: ATRIAL FIBRILLATION
     Dosage: 110 MG
     Route: 048
  7. NOVODIGAL 0,2 [Concomitant]
     Dosage: 1 ANZ
  8. EUTHYROX 125 [Concomitant]
     Dosage: 1 ANZ
  9. ASPIRIN [Concomitant]
     Dosage: 1 ANZ
  10. CARMEN 10 [Concomitant]
     Dosage: 1 ANZ
  11. MARCUMAR [Concomitant]
     Dosage: BY INR
  12. LORMETAZEPAM 2 [Concomitant]
     Dosage: 1 ANZ
  13. PRADAXA [Suspect]
     Dosage: 220 MG
     Route: 048
     Dates: start: 20110901, end: 20110906
  14. VOTUM PLUS 40/12,5 [Concomitant]
     Dosage: 1 ANZ
  15. THYROID HORMONE SUBSTITUTION [Concomitant]
  16. CLEXANE INJECTIONS [Concomitant]

REACTIONS (3)
  - PALPITATIONS [None]
  - VERTIGO [None]
  - NAUSEA [None]
